FAERS Safety Report 10009808 (Version 2)
Quarter: 2014Q1

REPORT INFORMATION
  Report Type: Spontaneous
  Country: US (occurrence: US)
  Receive Date: 20140312
  Receipt Date: 20140312
  Transmission Date: 20141002
  Serious: Yes (Other)
  Sender: FDA-Public Use
  Company Number: US-INCYTE CORPORATION-2012IN002162

PATIENT
  Age: 82 Year
  Sex: Male
  Weight: 70.75 kg

DRUGS (7)
  1. JAKAFI [Suspect]
     Indication: MYELOFIBROSIS
     Dosage: 15 MG, BID
     Route: 048
     Dates: start: 20120925, end: 20121016
  2. JAKAFI [Suspect]
     Dosage: 10 MG, BID
     Route: 048
     Dates: start: 20121102
  3. GLYBURIDE [Concomitant]
     Dosage: 2.5 MG, QD
  4. METOPROLOL TARTRATE [Concomitant]
     Dosage: 25 MG, BID
  5. ASPIRIN [Concomitant]
     Dosage: 81 MG, QD
     Route: 048
  6. LOSARTAN POTASSIUM [Concomitant]
     Dosage: 25 MG, QD
  7. NEXIUM [Concomitant]
     Dosage: 20 MG, QD, PRN

REACTIONS (3)
  - Anaemia [Recovered/Resolved]
  - Fatigue [Not Recovered/Not Resolved]
  - Weight decreased [Not Recovered/Not Resolved]
